FAERS Safety Report 6806985-8 (Version None)
Quarter: 2010Q2

REPORT INFORMATION
  Report Type: 
  Country: None (occurrence: None)
  Receive Date: 20100629
  Receipt Date: 20080707
  Transmission Date: 20101027
  Serious: Yes (Other)
  Sender: FDA-Public Use
  Company Number: US-PFIZER INC-2008043042

PATIENT
  Sex: Male
  Weight: 82.1 kg

DRUGS (2)
  1. VIAGRA [Suspect]
     Indication: PROSTATE CANCER
     Dosage: 1 TABLET EVERY OTHER DAY.
     Dates: start: 20071101
  2. VIAGRA [Suspect]
     Indication: ORGANIC ERECTILE DYSFUNCTION

REACTIONS (1)
  - DEAFNESS [None]
